FAERS Safety Report 11197942 (Version 1)
Quarter: 2015Q2

REPORT INFORMATION
  Report Type: Spontaneous
  Country: US (occurrence: US)
  Receive Date: 20150617
  Receipt Date: 20150617
  Transmission Date: 20150821
  Serious: No
  Sender: FDA-Public Use
  Company Number: US-GALDERMA-US15000973

PATIENT
  Age: 75 Year
  Sex: Female

DRUGS (12)
  1. CETAPHIL [Concomitant]
     Active Substance: AVOBENZONE\OCTOCRYLENE\TRICLOSAN
     Indication: THERAPEUTIC SKIN CARE TOPICAL
     Route: 061
  2. BIOTIN [Concomitant]
     Active Substance: BIOTIN
     Dosage: 1000 MCG
     Route: 048
  3. CHLORDIAZEPOXIDE-CLIDINIUM [Concomitant]
     Indication: IRRITABLE BOWEL SYNDROME
     Route: 048
  4. LA ROCHE POSAY ROSALIAC CC CREAM [Concomitant]
     Indication: ERYTHEMA
     Route: 061
     Dates: start: 20150115
  5. CENTRUM SILVER [Concomitant]
     Active Substance: VITAMINS
     Route: 048
  6. LA ROCHE POSAY ROSALIAC MOISTURIZER [Concomitant]
     Indication: ERYTHEMA
     Route: 061
     Dates: start: 20150115
  7. MIRVASO [Suspect]
     Active Substance: BRIMONIDINE TARTRATE
     Indication: ROSACEA
     Dosage: 0.33%
     Route: 061
     Dates: start: 20150216, end: 20150226
  8. FAMOTIDINE. [Concomitant]
     Active Substance: FAMOTIDINE
     Indication: GASTROOESOPHAGEAL REFLUX DISEASE
     Dosage: 20 MG
     Route: 048
  9. DIGESTIVE ADVANTAGE [Concomitant]
     Indication: IRRITABLE BOWEL SYNDROME
     Route: 048
  10. CLOBETASOL PROPIONATE (CLOBETASOL PROPIONATE) [Concomitant]
     Indication: ALOPECIA
     Dosage: 0.05%
     Route: 061
     Dates: start: 20150123
  11. VITAMIN E [Concomitant]
     Active Substance: .ALPHA.-TOCOPHEROL
     Route: 048
  12. VITAMIN D [Concomitant]
     Active Substance: CHOLECALCIFEROL

REACTIONS (5)
  - Skin burning sensation [Recovered/Resolved]
  - Drug ineffective [Recovered/Resolved]
  - Product use issue [Recovered/Resolved]
  - Flushing [Recovered/Resolved]
  - Erythema [Recovered/Resolved]

NARRATIVE: CASE EVENT DATE: 20150216
